FAERS Safety Report 8769871 (Version 1)
Quarter: 2012Q4

REPORT INFORMATION
  Report Type: 
  Country: US (occurrence: US)
  Receive Date: 20120906
  Receipt Date: 20120906
  Transmission Date: 20130627
  Serious: No
  Sender: FDA-Public Use
  Company Number: US-ASTRAZENECA-2012SE57871

PATIENT
  Sex: Male

DRUGS (5)
  1. NEXIUM [Suspect]
     Indication: DYSPEPSIA
     Dosage: unknown dose, once daily
     Route: 048
  2. NEXIUM [Suspect]
     Indication: GASTROOESOPHAGEAL REFLUX DISEASE
     Dosage: unknown dose, once daily
     Route: 048
  3. TOMS [Concomitant]
  4. ASPIRIN [Concomitant]
  5. ZANTAC [Concomitant]

REACTIONS (4)
  - Non-cardiac chest pain [Unknown]
  - Overweight [Unknown]
  - Off label use [Unknown]
  - Intentional drug misuse [Unknown]
